FAERS Safety Report 24970986 (Version 2)
Quarter: 2025Q1

REPORT INFORMATION
  Report Type: Spontaneous
  Country: US (occurrence: US)
  Receive Date: 20250214
  Receipt Date: 20250302
  Transmission Date: 20250409
  Serious: No
  Sender: BAUSCH AND LOMB
  Company Number: US-BAUSCHBL-2025BNL001923

PATIENT
  Age: 73 Year
  Sex: Female
  Weight: 67.13 kg

DRUGS (5)
  1. LUMIFY [Suspect]
     Active Substance: BRIMONIDINE TARTRATE
     Indication: Eyelash thickening
     Route: 065
     Dates: start: 20250124, end: 20250125
  2. LUMIFY [Suspect]
     Active Substance: BRIMONIDINE TARTRATE
     Indication: Ocular hyperaemia
     Route: 065
  3. LUMIFY [Suspect]
     Active Substance: BRIMONIDINE TARTRATE
  4. TOBRAMYCIN AND DEXAMETHASONE [Suspect]
     Active Substance: DEXAMETHASONE\TOBRAMYCIN
     Indication: Hordeolum
     Route: 047
     Dates: start: 20250130
  5. TOBRAMYCIN AND DEXAMETHASONE [Suspect]
     Active Substance: DEXAMETHASONE\TOBRAMYCIN
     Indication: Infection

REACTIONS (16)
  - Drug hypersensitivity [Unknown]
  - Swelling of eyelid [Unknown]
  - Rash [Unknown]
  - Hordeolum [Unknown]
  - Eye infection [Unknown]
  - Skin exfoliation [Unknown]
  - Pruritus [Unknown]
  - Foreign body sensation in eyes [Not Recovered/Not Resolved]
  - Erythema [Unknown]
  - Dry skin [Unknown]
  - Therapeutic product effect delayed [Unknown]
  - Eye irritation [Unknown]
  - Vasodilatation [Unknown]
  - Eye swelling [Unknown]
  - Ocular discomfort [Not Recovered/Not Resolved]
  - Eyelid irritation [Not Recovered/Not Resolved]

NARRATIVE: CASE EVENT DATE: 20250101
